FAERS Safety Report 6054281-1 (Version None)
Quarter: 2009Q1

REPORT INFORMATION
  Report Type: 
  Country: None (occurrence: None)
  Receive Date: 20090127
  Receipt Date: 20090114
  Transmission Date: 20090719
  Serious: Yes (Hospitalization, Disabling)
  Sender: FDA-Public Use
  Company Number: GB-AVENTIS-200910687GDDC

PATIENT
  Age: 51 Year
  Sex: Male

DRUGS (1)
  1. GLIBENCLAMIDE [Suspect]

REACTIONS (2)
  - HYPOGLYCAEMIC COMA [None]
  - OVERDOSE [None]
